FAERS Safety Report 9324547 (Version 3)
Quarter: 2014Q1

REPORT INFORMATION
  Report Type: Spontaneous
  Country: US (occurrence: US)
  Receive Date: 20130603
  Receipt Date: 20140326
  Transmission Date: 20141002
  Serious: Yes (Hospitalization)
  Sender: FDA-Public Use
  Company Number: US-B.I. PHARMACEUTICALS,INC./RIDGEFIELD-2013-BI-15311BP

PATIENT
  Age: 75 Year
  Sex: Male
  Weight: 91 kg

DRUGS (12)
  1. PRADAXA [Suspect]
     Indication: ATRIAL FIBRILLATION
     Dosage: 300 MG
     Route: 048
     Dates: start: 20101202, end: 20110615
  2. PRAVASTATIN [Concomitant]
     Dosage: 40 MG
     Route: 048
     Dates: start: 200906
  3. DICLOFENAC [Concomitant]
     Dosage: 150 MG
     Route: 048
     Dates: start: 200906
  4. ENALAPRIL [Concomitant]
     Dosage: 20 MG
     Route: 048
     Dates: start: 200906
  5. TRILIPIX [Concomitant]
     Dosage: 135 MG
     Route: 065
  6. SPIRIVA [Concomitant]
     Dosage: 18 MCG
     Route: 055
  7. DULERA [Concomitant]
     Route: 055
  8. ASPIRIN [Concomitant]
     Dosage: 325 MG
     Route: 048
  9. PACERONE [Concomitant]
     Dosage: 100 MG
     Route: 048
  10. LASIX [Concomitant]
     Dosage: 20 MG
     Route: 065
  11. NEXIUM [Concomitant]
     Dosage: 40 MG
     Route: 065
  12. FERROUS SULFATE [Concomitant]
     Dosage: 324 MG
     Route: 065

REACTIONS (3)
  - Upper gastrointestinal haemorrhage [Recovered/Resolved]
  - Haemorrhagic anaemia [Unknown]
  - Gastrointestinal haemorrhage [Unknown]
